FAERS Safety Report 8976201 (Version 2)
Quarter: 2013Q4

REPORT INFORMATION
  Report Type: Spontaneous
  Country: IT (occurrence: IT)
  Receive Date: 20121220
  Receipt Date: 20131209
  Transmission Date: 20140711
  Serious: Yes (Death)
  Sender: FDA-Public Use
  Company Number: IT-ROCHE-1166891

PATIENT
  Age: 83 Year
  Sex: Female

DRUGS (2)
  1. BONDRONAT [Suspect]
     Indication: PLASMA CELL MYELOMA
     Route: 042
     Dates: start: 20050101, end: 20060101
  2. AREDIA [Suspect]
     Indication: PLASMA CELL MYELOMA
     Route: 042
     Dates: start: 20020401, end: 20020701

REACTIONS (1)
  - Osteonecrosis of jaw [Fatal]
